FAERS Safety Report 25062628 (Version 1)
Quarter: 2025Q1

REPORT INFORMATION
  Report Type: Spontaneous
  Country: JP (occurrence: JP)
  Receive Date: 20250311
  Receipt Date: 20250311
  Transmission Date: 20250408
  Serious: Yes (Other)
  Sender: GILEAD
  Company Number: JP-GILEAD-2025-0702709

PATIENT
  Sex: Male

DRUGS (2)
  1. DESCOVY [Suspect]
     Active Substance: EMTRICITABINE\TENOFOVIR ALAFENAMIDE FUMARATE
     Indication: HIV infection
     Route: 048
  2. TIVICAY [Concomitant]
     Active Substance: DOLUTEGRAVIR SODIUM

REACTIONS (2)
  - Cholecystectomy [Unknown]
  - Physical deconditioning [Unknown]
